FAERS Safety Report 6147988-9 (Version None)
Quarter: 2009Q2

REPORT INFORMATION
  Report Type: 
  Country: None (occurrence: None)
  Receive Date: 20090403
  Receipt Date: 20090315
  Transmission Date: 20091009
  Serious: Yes (Other)
  Sender: FDA-Public Use
  Company Number: 2008AP002266

PATIENT
  Age: 61 Year
  Sex: Male

DRUGS (5)
  1. GABAPENTIN [Suspect]
     Dosage: 800 MG;TAB;PO;TID ; 400 MG;CAP;PO;TID
     Route: 048
  2. ESOMEPRAZOLE MAGNESIUM [Concomitant]
  3. LAMOTRIGINE [Concomitant]
  4. CANDESARTAN CILEXETIL [Concomitant]
  5. MORPHINE SULFATE INJ [Concomitant]

REACTIONS (6)
  - DRY MOUTH [None]
  - EYE PAIN [None]
  - HYPERSOMNIA [None]
  - MEMORY IMPAIRMENT [None]
  - PYREXIA [None]
  - SOMNOLENCE [None]
